FAERS Safety Report 24895746 (Version 1)
Quarter: 2025Q1

REPORT INFORMATION
  Report Type: Spontaneous
  Country: NL (occurrence: NL)
  Receive Date: 20250128
  Receipt Date: 20250128
  Transmission Date: 20250409
  Serious: Yes (Other)
  Sender: TEVA
  Company Number: None

PATIENT
  Age: 78 Year
  Sex: Male
  Weight: 72 kg

DRUGS (2)
  1. BISOPROLOL [Suspect]
     Active Substance: BISOPROLOL
     Indication: Cardiac disorder
     Dosage: 1 PIECE ONCE A DAY; BRAND NAME NOT SPECIFIED; 04/2027
     Route: 048
     Dates: start: 20241009, end: 20241204
  2. ACENOCOUMAROL CF [Concomitant]
     Indication: Product used for unknown indication
     Route: 048

REACTIONS (2)
  - Orbital haematoma [Recovered/Resolved]
  - Headache [Recovered/Resolved]
